FAERS Safety Report 4656650-0 (Version None)
Quarter: 2005Q2

REPORT INFORMATION
  Report Type: 
  Country: None (occurrence: None)
  Receive Date: 20050331
  Receipt Date: 20040929
  Transmission Date: 20051028
  Serious: No
  Sender: FDA-Public Use
  Company Number: US093732

PATIENT
  Age: 43 Year
  Sex: Female
  Weight: 49.9 kg

DRUGS (1)
  1. NEULASTA [Suspect]
     Dates: start: 20040909

REACTIONS (4)
  - ABDOMINAL PAIN UPPER [None]
  - CYANOSIS [None]
  - FLUSHING [None]
  - PALPITATIONS [None]
